FAERS Safety Report 19440991 (Version 5)
Quarter: 2022Q1

REPORT INFORMATION
  Report Type: Spontaneous
  Country: GB (occurrence: GB)
  Receive Date: 20210621
  Receipt Date: 20220210
  Transmission Date: 20220423
  Serious: Yes (Other)
  Sender: FDA-Public Use
  Company Number: GB-SA-SAC20210604000548

PATIENT
  Age: 73 Year
  Sex: Female
  Weight: 50 kg

DRUGS (26)
  1. ALLOPURINOL [Suspect]
     Active Substance: ALLOPURINOL
     Indication: Product used for unknown indication
     Dosage: 30 MILLIGRAM, ONCE A DAY
     Route: 065
     Dates: start: 20171104
  2. ALLOPURINOL [Suspect]
     Active Substance: ALLOPURINOL
     Dosage: 300 MILLIGRAM, ONCE A DAY
     Route: 065
     Dates: start: 20171120
  3. BENDROFLUMETHIAZIDE [Suspect]
     Active Substance: BENDROFLUMETHIAZIDE
     Indication: Product used for unknown indication
     Dosage: 2.5 MILLIGRAM, ONCE A DAY
     Route: 065
  4. MELPHALAN [Suspect]
     Active Substance: MELPHALAN
     Indication: Plasma cell leukaemia
     Dosage: 14 MILLIGRAM, QD
     Route: 065
     Dates: start: 20171103, end: 20171103
  5. MELPHALAN [Suspect]
     Active Substance: MELPHALAN
     Dosage: 14 MILLIGRAM, QD
     Route: 065
     Dates: start: 20171107, end: 20171110
  6. RAMIPRIL [Suspect]
     Active Substance: RAMIPRIL
     Indication: Product used for unknown indication
     Dosage: 10 MILLIGRAM, ONCE A DAY
     Route: 065
  7. SERTRALINE [Suspect]
     Active Substance: SERTRALINE HYDROCHLORIDE
     Indication: Product used for unknown indication
     Dosage: 50 MILLIGRAM, ONCE A DAY
     Route: 065
  8. BORTEZOMIB [Suspect]
     Active Substance: BORTEZOMIB
     Indication: Plasma cell leukaemia
     Dosage: 1.8 MILLIGRAM
     Route: 058
     Dates: start: 20171103, end: 20171103
  9. BORTEZOMIB [Suspect]
     Active Substance: BORTEZOMIB
     Dosage: 1.8 MILLIGRAM
     Route: 058
     Dates: start: 20171107, end: 201711
  10. BORTEZOMIB [Suspect]
     Active Substance: BORTEZOMIB
     Dosage: 1.8 MILLIGRAM
     Route: 058
     Dates: start: 20171110, end: 20171114
  11. DEXAMETHASONE [Suspect]
     Active Substance: DEXAMETHASONE
     Indication: Plasma cell leukaemia
     Dosage: 20 MILLIGRAM, QD
     Route: 065
     Dates: start: 20171102, end: 20171106
  12. FENTANYL [Suspect]
     Active Substance: FENTANYL
     Indication: Product used for unknown indication
     Dosage: 12 MILLIGRAM;
     Route: 062
     Dates: start: 20171108
  13. METOCLOPRAMIDE HYDROCHLORIDE [Suspect]
     Active Substance: METOCLOPRAMIDE HYDROCHLORIDE
     Indication: Product used for unknown indication
     Dosage: 10 MILLIGRAM
     Route: 065
  14. OMEPRAZOLE [Suspect]
     Active Substance: OMEPRAZOLE
     Indication: Product used for unknown indication
     Dosage: 20 MILLIGRAM, ONCE A DAY
     Route: 048
  15. PREDNISONE [Suspect]
     Active Substance: PREDNISONE
     Indication: Plasma cell leukaemia
     Dosage: 70 MILLIGRAM, QD
     Route: 065
     Dates: start: 20171103, end: 20171103
  16. PREDNISONE [Suspect]
     Active Substance: PREDNISONE
     Dosage: 70 MILLIGRAM, QD
     Route: 065
     Dates: start: 20171106, end: 20171106
  17. SODIUM CHLORIDE [Suspect]
     Active Substance: SODIUM CHLORIDE
     Indication: Medication dilution
     Dosage: UNK; ;
     Route: 041
     Dates: start: 20171103, end: 20171106
  18. SODIUM CHLORIDE [Suspect]
     Active Substance: SODIUM CHLORIDE
     Dosage: UNK; ;
     Route: 041
     Dates: start: 20171107, end: 201711
  19. SODIUM CHLORIDE [Suspect]
     Active Substance: SODIUM CHLORIDE
     Dosage: UNK; ;
     Route: 041
     Dates: start: 20171110, end: 20171114
  20. FENTANYL [Suspect]
     Active Substance: FENTANYL
     Indication: Product used for unknown indication
     Dosage: 12 MILLIGRAM
     Route: 062
     Dates: start: 20171108
  21. VELCADE [Suspect]
     Active Substance: BORTEZOMIB
     Indication: Plasma cell leukaemia
     Dosage: 1.8 MILLIGRAM;
     Route: 058
     Dates: start: 20171110, end: 20171114
  22. VELCADE [Suspect]
     Active Substance: BORTEZOMIB
     Dosage: 1.8 MILLIGRAM;
     Route: 058
     Dates: start: 20171107, end: 201711
  23. VELCADE [Suspect]
     Active Substance: BORTEZOMIB
     Dosage: 1.8 MILLIGRAM;
     Route: 058
     Dates: start: 20171103, end: 20171103
  24. VELCADE [Suspect]
     Active Substance: BORTEZOMIB
     Dosage: 1.8 MILLIGRAM
     Route: 065
  25. VELCADE [Suspect]
     Active Substance: BORTEZOMIB
     Dosage: 1.3 MILLIGRAM/SQ. METER;
     Route: 058
     Dates: start: 20171106, end: 20171106
  26. VELCADE [Suspect]
     Active Substance: BORTEZOMIB
     Dosage: 1.3 MILLIGRAM/SQ. METER;
     Route: 058
     Dates: start: 20171110, end: 20171110

REACTIONS (10)
  - Hallucination [Recovered/Resolved]
  - Disorientation [Recovered/Resolved]
  - Disturbance in social behaviour [Recovered/Resolved]
  - Emotional distress [Not Recovered/Not Resolved]
  - Confusional state [Not Recovered/Not Resolved]
  - Agitation [Not Recovered/Not Resolved]
  - Abnormal behaviour [Not Recovered/Not Resolved]
  - Paranoia [Not Recovered/Not Resolved]
  - Product use in unapproved indication [Unknown]
  - Off label use [Unknown]

NARRATIVE: CASE EVENT DATE: 20171107
